FAERS Safety Report 4839802-6 (Version None)
Quarter: 2005Q4

REPORT INFORMATION
  Report Type: 
  Country: None (occurrence: None)
  Receive Date: 20051129
  Receipt Date: 20050921
  Transmission Date: 20060501
  Serious: No
  Sender: FDA-Public Use
  Company Number: US-GLAXOSMITHKLINE-A0575230A

PATIENT
  Age: 62 Year
  Sex: Female

DRUGS (3)
  1. WELLBUTRIN SR [Suspect]
     Dosage: 450MG PER DAY
     Route: 048
  2. LEXAPRO [Concomitant]
  3. LAMICTAL [Concomitant]

REACTIONS (3)
  - MEDICATION ERROR [None]
  - OVERDOSE [None]
  - SOMNOLENCE [None]
